FAERS Safety Report 11270716 (Version 2)
Quarter: 2015Q3

REPORT INFORMATION
  Report Type: Spontaneous
  Country: US (occurrence: US)
  Receive Date: 20150714
  Receipt Date: 20150723
  Transmission Date: 20151125
  Serious: Yes (Other)
  Sender: FDA-Public Use
  Company Number: US-BAYER-2015-374462

PATIENT
  Age: 41 Year
  Sex: Female

DRUGS (1)
  1. MIRENA [Suspect]
     Active Substance: LEVONORGESTREL
     Indication: CONTRACEPTION
     Dosage: 20 MCG/24HR, CONT
     Route: 015
     Dates: start: 201504, end: 201506

REACTIONS (18)
  - Genital haemorrhage [Recovering/Resolving]
  - Anger [Not Recovered/Not Resolved]
  - Female sexual dysfunction [None]
  - Skin disorder [None]
  - Depression [Not Recovered/Not Resolved]
  - Abdominal pain lower [Recovering/Resolving]
  - Mood altered [Not Recovered/Not Resolved]
  - Adverse drug reaction [None]
  - Drug hypersensitivity [Recovered/Resolved]
  - Crying [Not Recovered/Not Resolved]
  - Loss of libido [Not Recovered/Not Resolved]
  - Rash [None]
  - Adverse event [Not Recovered/Not Resolved]
  - Anxiety [Not Recovered/Not Resolved]
  - Insomnia [None]
  - Night sweats [None]
  - Homicidal ideation [Recovered/Resolved]
  - Feeling abnormal [Not Recovered/Not Resolved]

NARRATIVE: CASE EVENT DATE: 2015
